FAERS Safety Report 15634187 (Version 3)
Quarter: 2022Q2

REPORT INFORMATION
  Report Type: Report from Study
  Country: US (occurrence: US)
  Receive Date: 20181119
  Receipt Date: 20220408
  Transmission Date: 20220721
  Serious: Yes (Other)
  Sender: FDA-Public Use
  Company Number: US-INCYTE CORPORATION-2018IN010790

PATIENT

DRUGS (12)
  1. JAKAFI [Suspect]
     Active Substance: RUXOLITINIB
     Indication: Myelofibrosis
     Dosage: 5 MILLIGRAM, BID
     Route: 065
     Dates: start: 20160413, end: 20170809
  2. JAKAFI [Suspect]
     Active Substance: RUXOLITINIB
     Dosage: 7.5 MG, QD
     Route: 065
     Dates: start: 20170809
  3. ALLOPURINOL [Concomitant]
     Active Substance: ALLOPURINOL
     Indication: Blood uric acid decreased
     Dosage: 100 MILLIGRAM, QD
     Route: 065
     Dates: start: 20160210, end: 20201111
  4. ASPIRIN                            /00002701/ [Concomitant]
     Indication: Anticoagulant therapy
     Dosage: 81 MILLIGRAM, QD
     Route: 065
     Dates: start: 2003
  5. MULTIVITAMIN                       /07504101/ [Concomitant]
     Indication: Supplementation therapy
     Dosage: UNK UNITS, QD
     Route: 065
     Dates: start: 20150901
  6. OMEPRAZOLE [Concomitant]
     Active Substance: OMEPRAZOLE
     Indication: Dyspepsia
     Dosage: 10 MILLIGRAM, QD
     Route: 065
     Dates: start: 20150901
  7. OMEPRAZOLE [Concomitant]
     Active Substance: OMEPRAZOLE
     Indication: Prophylaxis
  8. COLESEVELAM [Concomitant]
     Active Substance: COLESEVELAM
     Indication: Diarrhoea
     Dosage: 625 MILLIGRAM, QD
     Route: 065
     Dates: start: 20170328
  9. COLESEVELAM [Concomitant]
     Active Substance: COLESEVELAM
     Indication: Prophylaxis
  10. PEGASYS [Concomitant]
     Active Substance: PEGINTERFERON ALFA-2A
     Indication: Myelofibrosis
     Dosage: 90 UNK
     Route: 065
     Dates: start: 20151103, end: 20170222
  11. PEGASYS [Concomitant]
     Active Substance: PEGINTERFERON ALFA-2A
     Dosage: 90 MICROGRAM, 45 MICROGRAM
     Route: 065
     Dates: start: 20170222, end: 20171004
  12. PEGASYS [Concomitant]
     Active Substance: PEGINTERFERON ALFA-2A
     Dosage: 45 MICROGRAM
     Route: 065
     Dates: start: 20171004

REACTIONS (5)
  - Basal cell carcinoma [Recovered/Resolved]
  - Hyperhidrosis [Recovered/Resolved]
  - Melanocytic naevus [Not Recovered/Not Resolved]
  - Low density lipoprotein increased [Not Recovered/Not Resolved]
  - Blood pressure increased [Not Recovered/Not Resolved]

NARRATIVE: CASE EVENT DATE: 20180901
